FAERS Safety Report 10454405 (Version 2)
Quarter: 2014Q4

REPORT INFORMATION
  Report Type: Report from Study
  Country: US (occurrence: US)
  Receive Date: 20140915
  Receipt Date: 20141119
  Transmission Date: 20150528
  Serious: Yes (Death, Other)
  Sender: FDA-Public Use
  Company Number: US-US-EMD SERONO, INC.-7320703

PATIENT
  Sex: Female

DRUGS (1)
  1. REBIF [Suspect]
     Active Substance: INTERFERON BETA-1A
     Indication: PRODUCT USED FOR UNKNOWN INDICATION
     Route: 058
     Dates: start: 20040828, end: 201408

REACTIONS (7)
  - Pancreatitis necrotising [Fatal]
  - Fall [Unknown]
  - Breast cancer female [Unknown]
  - Mobility decreased [Unknown]
  - Weight increased [Unknown]
  - Cholelithiasis [Fatal]
  - Foot fracture [Unknown]

NARRATIVE: CASE EVENT DATE: 2011
